FAERS Safety Report 13326816 (Version 1)
Quarter: 2017Q1

REPORT INFORMATION
  Report Type: Report from Study
  Country: US (occurrence: US)
  Receive Date: 20170312
  Receipt Date: 20170312
  Transmission Date: 20170428
  Serious: No
  Sender: FDA-Public Use
  Company Number: GXBR2017US000706

PATIENT
  Age: 14 Year
  Sex: Female

DRUGS (6)
  1. OMNITROPE [Suspect]
     Active Substance: SOMATROPIN
     Indication: TURNER^S SYNDROME
     Dosage: 1.9 MG, QD
     Route: 058
     Dates: start: 201601
  2. CLIMARA [Concomitant]
     Active Substance: ESTRADIOL
     Dosage: 0.0375 MG, /24H CHANGED WEEKLY
  3. DIAZEPAM. [Concomitant]
     Active Substance: DIAZEPAM
     Dosage: UNK DF, UNK
  4. KEPPRA [Concomitant]
     Active Substance: LEVETIRACETAM
     Dosage: UNK DF, UNK
  5. VITAMIN B6 [Concomitant]
     Active Substance: PYRIDOXINE HYDROCHLORIDE
     Dosage: UNK DF, UNK
  6. MULTI-VIT [Concomitant]
     Active Substance: VITAMINS
     Dosage: UNK DF, UNK

REACTIONS (2)
  - Vaginal discharge [Unknown]
  - Vaginal enlargement [Unknown]

NARRATIVE: CASE EVENT DATE: 201610
